FAERS Safety Report 24883029 (Version 1)
Quarter: 2025Q1

REPORT INFORMATION
  Report Type: Spontaneous
  Country: IT (occurrence: IT)
  Receive Date: 20250124
  Receipt Date: 20250124
  Transmission Date: 20250409
  Serious: Yes (Hospitalization)
  Sender: MYLAN
  Company Number: None

PATIENT
  Age: 3 Year
  Sex: Male
  Weight: 15 kg

DRUGS (1)
  1. ALLOPURINOL [Suspect]
     Active Substance: ALLOPURINOL
     Indication: Product used for unknown indication
     Route: 048
     Dates: start: 20250112, end: 20250112

REACTIONS (4)
  - Hyperthermia [Unknown]
  - Pruritus [Unknown]
  - Rash [Unknown]
  - Medication error [Unknown]

NARRATIVE: CASE EVENT DATE: 20250112
